FAERS Safety Report 9628294 (Version 3)
Quarter: 2014Q1

REPORT INFORMATION
  Report Type: Spontaneous
  Country: DE (occurrence: DE)
  Receive Date: 20131017
  Receipt Date: 20140127
  Transmission Date: 20141002
  Serious: Yes (Other)
  Sender: FDA-Public Use
  Company Number: DE-ROCHE-1289208

PATIENT
  Sex: Male

DRUGS (4)
  1. XOLAIR [Suspect]
     Indication: ASTHMA
     Dosage: 1  DOSAGE FORM
     Route: 058
     Dates: start: 201302
  2. XOLAIR [Suspect]
     Indication: MULTIPLE ALLERGIES
     Route: 058
  3. XOLAIR [Suspect]
     Route: 058
  4. VIANI [Concomitant]

REACTIONS (6)
  - Cardiovascular disorder [Recovered/Resolved]
  - Syncope [Recovered/Resolved]
  - Dyspnoea [Not Recovered/Not Resolved]
  - Hyperhidrosis [Unknown]
  - Hypotension [Recovered/Resolved]
  - Psychosomatic disease [Unknown]
